FAERS Safety Report 10218672 (Version 3)
Quarter: 2014Q3

REPORT INFORMATION
  Report Type: Spontaneous
  Country: US (occurrence: US)
  Receive Date: 20140605
  Receipt Date: 20140903
  Transmission Date: 20150326
  Serious: Yes (Hospitalization)
  Sender: FDA-Public Use
  Company Number: US-BAYER-2014-084297

PATIENT
  Age: 42 Year
  Sex: Female
  Weight: 58.96 kg

DRUGS (1)
  1. YASMIN [Suspect]
     Active Substance: DROSPIRENONE\ETHINYL ESTRADIOL
     Dosage: UNK
     Route: 048
     Dates: start: 200310, end: 200412

REACTIONS (7)
  - Pain [None]
  - Emotional distress [None]
  - Injury [None]
  - Mental disorder [None]
  - Thrombosis [None]
  - General physical health deterioration [None]
  - Deep vein thrombosis [None]

NARRATIVE: CASE EVENT DATE: 2004
